FAERS Safety Report 6262788-7 (Version None)
Quarter: 2009Q3

REPORT INFORMATION
  Report Type: 
  Country: None (occurrence: None)
  Receive Date: 20090709
  Receipt Date: 20090629
  Transmission Date: 20100115
  Serious: Yes (Hospitalization, Other)
  Sender: FDA-Public Use
  Company Number: US-ABBOTT-09P-163-0573406-00

PATIENT
  Sex: Male
  Weight: 96.248 kg

DRUGS (10)
  1. HUMIRA [Suspect]
     Indication: RHEUMATOID ARTHRITIS
     Route: 058
     Dates: start: 20070101
  2. GLIPIZIDE [Concomitant]
     Indication: DIABETES MELLITUS
     Dosage: UNKNOWN
  3. LISINOPRIL [Concomitant]
     Indication: HYPERTENSION
     Dosage: UNKNOWN
  4. LOVASTATIN [Concomitant]
     Indication: BLOOD CHOLESTEROL INCREASED
     Dosage: DAILY
  5. METHOTREXATE [Concomitant]
     Indication: RHEUMATOID ARTHRITIS
     Dosage: WEEKLY
  6. HYDROCHLOROTHIAZIDE [Concomitant]
     Indication: HYPERTENSION
     Dosage: DAILY
  7. PREDNISONE [Concomitant]
     Indication: RHEUMATOID ARTHRITIS
     Dosage: DAILY
  8. FOLIC ACID [Concomitant]
     Indication: RHEUMATOID ARTHRITIS
     Dosage: DAILY
  9. TERAZOSIN HCL [Concomitant]
     Indication: HYPERTENSION
     Dosage: DAILY
  10. AMLODIPINE [Concomitant]
     Indication: HYPERTENSION
     Dosage: DAILY

REACTIONS (10)
  - BALANCE DISORDER [None]
  - CERVICAL VERTEBRAL FRACTURE [None]
  - DIZZINESS [None]
  - EAR DISCOMFORT [None]
  - EAR HAEMORRHAGE [None]
  - INJECTION SITE HAEMORRHAGE [None]
  - INJECTION SITE PAIN [None]
  - LOSS OF CONSCIOUSNESS [None]
  - ROTATOR CUFF SYNDROME [None]
  - SKULL FRACTURE [None]
